FAERS Safety Report 4826311-3 (Version None)
Quarter: 2005Q4

REPORT INFORMATION
  Report Type: 
  Country: None (occurrence: None)
  Receive Date: 20051111
  Receipt Date: 20051107
  Transmission Date: 20060501
  Serious: No
  Sender: FDA-Public Use
  Company Number: 2005PK02065

PATIENT
  Age: 16 Year
  Sex: Female

DRUGS (3)
  1. SEROQUEL [Suspect]
     Indication: SCHIZOPHRENIA, DISORGANISED TYPE
     Route: 048
     Dates: start: 20051010
  2. SEROQUEL [Suspect]
     Route: 048
     Dates: start: 20051101
  3. TAVOR [Concomitant]

REACTIONS (1)
  - EOSINOPHILIA [None]
